FAERS Safety Report 17589386 (Version 1)
Quarter: 2020Q1

REPORT INFORMATION
  Report Type: Spontaneous
  Country: US (occurrence: US)
  Receive Date: 20200327
  Receipt Date: 20200327
  Transmission Date: 20200409
  Serious: No
  Sender: FDA-Public Use
  Company Number: US-ALLERGAN-1935975US

PATIENT
  Age: 70 Year
  Sex: Female

DRUGS (1)
  1. LATISSE [Suspect]
     Active Substance: BIMATOPROST
     Indication: GROWTH OF EYELASHES
     Dosage: 1 GTT, QD, AT NIGHT
     Route: 061
     Dates: start: 20190822, end: 20190830

REACTIONS (3)
  - Wrong technique in product usage process [Unknown]
  - Eye discharge [Recovered/Resolved]
  - Swelling of eyelid [Recovered/Resolved]
